FAERS Safety Report 8176170-9 (Version None)
Quarter: 2012Q1

REPORT INFORMATION
  Report Type: 
  Country: None (occurrence: None)
  Receive Date: 20120301
  Receipt Date: 20120221
  Transmission Date: 20120608
  Serious: Yes (Hospitalization)
  Sender: FDA-Public Use
  Company Number: US-BAYER-2011-090614

PATIENT
  Age: 29 Year
  Sex: Female
  Weight: 67 kg

DRUGS (5)
  1. YASMIN [Suspect]
     Indication: ENDOMETRIOSIS
     Dosage: UNK
     Route: 048
     Dates: start: 20031001, end: 20040201
  2. LUPRON [Concomitant]
     Dosage: 3 MG, UNK
     Route: 030
     Dates: start: 20040202
  3. YASMIN [Suspect]
     Indication: PREMENSTRUAL SYNDROME
  4. TOPROL-XL [Concomitant]
     Dosage: 50 MG, UNK
     Dates: start: 20040214
  5. ADENOSINE [Concomitant]
     Dosage: UNK
     Dates: start: 20040214

REACTIONS (9)
  - EMOTIONAL DISTRESS [None]
  - INJURY [None]
  - PULMONARY EMBOLISM [None]
  - DYSPNOEA [None]
  - GENERAL PHYSICAL HEALTH DETERIORATION [None]
  - ANXIETY [None]
  - MENTAL DISORDER [None]
  - SYNCOPE [None]
  - PAIN [None]
